FAERS Safety Report 6632369-1 (Version None)
Quarter: 2010Q1

REPORT INFORMATION
  Report Type: 
  Country: None (occurrence: None)
  Receive Date: 20100312
  Receipt Date: 20100309
  Transmission Date: 20100710
  Serious: Yes (Death)
  Sender: FDA-Public Use
  Company Number: US-MERCK-1003USA01283

PATIENT
  Sex: Female

DRUGS (1)
  1. ZOCOR [Suspect]
     Route: 048
     Dates: start: 19970101

REACTIONS (1)
  - CORONARY ARTERY DISEASE [None]
